FAERS Safety Report 4441816-5 (Version None)
Quarter: 2004Q3

REPORT INFORMATION
  Report Type: 
  Country: None (occurrence: None)
  Receive Date: 20040901
  Receipt Date: 20040819
  Transmission Date: 20050211
  Serious: Yes (Hospitalization)
  Sender: FDA-Public Use
  Company Number: 2004050243

PATIENT
  Age: 72 Year
  Sex: Male
  Weight: 60.4 kg

DRUGS (7)
  1. LIPITOR [Suspect]
     Indication: HYPERLIPIDAEMIA
     Dosage: 10 MG (10 MG, QD), ORAL
     Route: 048
     Dates: start: 20040701, end: 20040708
  2. ASPIRIN [Concomitant]
  3. ATENOLOL [Concomitant]
  4. RANITIDINE HYDROCHLORIDE [Concomitant]
  5. VALSARTAN (VALSARTAN) [Concomitant]
  6. BENIDIPINE HYDROCHLORIDE (BENIDIPINE HYDROCHLORIDE) [Concomitant]
  7. ISOSORBIDE DINITRATE [Concomitant]

REACTIONS (1)
  - RHABDOMYOLYSIS [None]
